FAERS Safety Report 9146938 (Version 4)
Quarter: 2013Q4

REPORT INFORMATION
  Report Type: Spontaneous
  Country: US (occurrence: None)
  Receive Date: 20130214
  Receipt Date: 20131127
  Transmission Date: 20140711
  Serious: Yes (Death, Hospitalization, Other)
  Sender: FDA-Public Use
  Company Number: 2013SGN00035

PATIENT
  Age: 52 Year
  Sex: Female
  Weight: 53.3 kg

DRUGS (12)
  1. BRENTUXIMAB VEDOTIN [Suspect]
     Indication: OVARIAN EPITHELIAL CANCER
     Route: 042
     Dates: start: 20130118, end: 20130118
  2. ACETAMINOPHEN [Concomitant]
  3. COLACE [Concomitant]
  4. DULCOLAX (BISACODYL) [Concomitant]
  5. FAMOTIDINE (FAMOTIDINE) [Concomitant]
  6. FENTANYL (FENTANYL CITRATE) [Concomitant]
  7. HYDROMORPHONE (HYDROMORPHONE) [Concomitant]
  8. MELATONIN (MELATONIN) [Concomitant]
  9. MIRALAX [Concomitant]
  10. NYSTATIN (NYSTATIN) [Concomitant]
  11. OLANZAPINE (OLANZAPINE) [Concomitant]
  12. SIMETHICONE (SIMETHICONE) [Concomitant]

REACTIONS (6)
  - Lymphocyte count decreased [None]
  - Abdominal pain [None]
  - Ovarian epithelial cancer [None]
  - Malignant neoplasm progression [None]
  - Ovarian cancer [None]
  - Lymphopenia [None]
